FAERS Safety Report 14355743 (Version 6)
Quarter: 2018Q4

REPORT INFORMATION
  Report Type: Report from Study
  Country: JP (occurrence: JP)
  Receive Date: 20180105
  Receipt Date: 20181225
  Transmission Date: 20190204
  Serious: Yes (Death, Hospitalization, Other)
  Sender: FDA-Public Use
  Company Number: JP-BAUSCH-BL-2017-036069

PATIENT
  Age: 78 Year
  Sex: Male
  Weight: 56 kg

DRUGS (13)
  1. MIZORIBINE [Concomitant]
     Active Substance: MIZORIBINE
     Indication: PSORIATIC ARTHROPATHY
     Route: 048
     Dates: start: 20171025, end: 20171203
  2. LUMICEF [Suspect]
     Active Substance: BRODALUMAB
     Dosage: SYRINGE (DURATION: 5 MONTHS 30 DAYS)
     Route: 058
     Dates: start: 20170524, end: 20171122
  3. NEUROTROPIN [Concomitant]
     Active Substance: NEUROTROPIN
     Indication: PSORIATIC ARTHROPATHY
     Route: 048
     Dates: start: 20171011, end: 20171024
  4. GENTACIN [Concomitant]
     Active Substance: GENTAMICIN SULFATE
     Indication: PSORIASIS
     Dosage: CREAM
     Route: 061
     Dates: end: 20171203
  5. LUMICEF [Suspect]
     Active Substance: BRODALUMAB
     Dosage: SYRINGE
     Route: 058
     Dates: start: 20170419, end: 20170510
  6. ANTEBATE [Concomitant]
     Active Substance: BETAMETHASONE DIPROPIONATE
     Indication: PSORIASIS
     Dosage: CREAM
     Route: 061
     Dates: end: 20171203
  7. LAMISIL [Concomitant]
     Active Substance: TERBINAFINE HYDROCHLORIDE
     Indication: TINEA PEDIS
     Dosage: CREAM
     Route: 061
     Dates: end: 20171203
  8. LUMICEF [Suspect]
     Active Substance: BRODALUMAB
     Indication: PSORIASIS
     Dosage: SYRINGE
     Route: 058
     Dates: start: 20170322, end: 20170405
  9. HIRUDOID [Concomitant]
     Active Substance: GLYCOSAMINOGLYCANS
     Indication: PSORIASIS
     Dosage: EXTRA FORMULATION
     Route: 061
     Dates: end: 20171203
  10. VOLTAREN [Concomitant]
     Active Substance: DICLOFENAC SODIUM
     Indication: PSORIATIC ARTHROPATHY
     Dosage: GEL (EXCEPT LOTION FOR EYE)
     Route: 061
     Dates: start: 20170913, end: 20171010
  11. OTEZLA [Concomitant]
     Active Substance: APREMILAST
     Indication: PSORIASIS
     Route: 048
     Dates: start: 20170525, end: 20171203
  12. HIRUDOID [Concomitant]
     Active Substance: GLYCOSAMINOGLYCANS
     Dosage: EXTRA FORMULATION
     Route: 061
  13. MYCOSPOR [Concomitant]
     Active Substance: BIFONAZOLE
     Indication: TINEA PEDIS
     Route: 061
     Dates: end: 20171203

REACTIONS (4)
  - Pneumonia [Not Recovered/Not Resolved]
  - Cardiac failure [Fatal]
  - Respiratory failure [Fatal]
  - Psoriatic arthropathy [Unknown]

NARRATIVE: CASE EVENT DATE: 201707
